FAERS Safety Report 4894491-X (Version None)
Quarter: 2006Q1

REPORT INFORMATION
  Report Type: 
  Country: None (occurrence: None)
  Receive Date: 20060127
  Receipt Date: 20050526
  Transmission Date: 20060701
  Serious: Yes (Hospitalization, Disabling, Other)
  Sender: FDA-Public Use
  Company Number: US-GILEAD-2005-0008369

PATIENT
  Sex: Male
  Weight: 71.732 kg

DRUGS (12)
  1. TRUVADA [Suspect]
     Indication: HIV INFECTION
     Route: 048
     Dates: start: 20041019, end: 20050301
  2. RITONAVIR [Concomitant]
     Indication: HIV INFECTION
     Route: 048
     Dates: start: 20030101
  3. INDINAVIR [Concomitant]
     Indication: HIV INFECTION
     Dates: start: 19960801
  4. ALLOPURINOL [Concomitant]
     Indication: GOUT
  5. TRICOR [Concomitant]
  6. PAXIL [Concomitant]
  7. PLENDIL [Concomitant]
     Indication: HYPERTENSION
  8. TESTOSTERONE [Concomitant]
     Route: 030
  9. AVAPRO [Concomitant]
     Indication: HYPERTENSION
     Dates: end: 20050224
  10. NEXIUM [Concomitant]
  11. FLUOXETINE [Concomitant]
  12. VIAGRA [Concomitant]

REACTIONS (4)
  - DIALYSIS [None]
  - KIDNEY FIBROSIS [None]
  - RENAL FAILURE ACUTE [None]
  - RENAL TUBULAR ATROPHY [None]
